FAERS Safety Report 23546478 (Version 1)
Quarter: 2024Q1

REPORT INFORMATION
  Report Type: Spontaneous
  Country: CN (occurrence: CN)
  Receive Date: 20240220
  Receipt Date: 20240220
  Transmission Date: 20240410
  Serious: Yes (Hospitalization, Other)
  Sender: FDA-Public Use
  Company Number: CN-SSPHARMA-2024CNSSP00007

PATIENT
  Age: 68 Year
  Sex: Female

DRUGS (2)
  1. CALCITRIOL [Suspect]
     Active Substance: CALCITRIOL
     Indication: Osteoporosis
  2. CALCIUM CARBONATE [Concomitant]
     Active Substance: CALCIUM CARBONATE
     Indication: Osteoporosis

REACTIONS (1)
  - Mesenteric phlebosclerosis [Recovering/Resolving]
